FAERS Safety Report 6421972-X (Version None)
Quarter: 2009Q4

REPORT INFORMATION
  Report Type: 
  Country: None (occurrence: None)
  Receive Date: 20091030
  Receipt Date: 20091026
  Transmission Date: 20100525
  Serious: Yes (Disabling, Other)
  Sender: FDA-Public Use
  Company Number: US-MERCK-0910USA03357

PATIENT
  Age: 61 Year
  Sex: Female

DRUGS (22)
  1. DECADRON [Suspect]
     Route: 048
  2. REVLIMID [Suspect]
     Indication: MULTIPLE MYELOMA
     Route: 048
     Dates: start: 20090422, end: 20090624
  3. REVLIMID [Suspect]
     Route: 048
     Dates: start: 20090625, end: 20090722
  4. REVLIMID [Suspect]
     Route: 048
     Dates: start: 20090101
  5. MS CONTIN [Concomitant]
     Route: 065
  6. MORPHINA [Concomitant]
     Route: 065
  7. ATARAX [Concomitant]
     Route: 065
  8. CARISOPRODOL [Concomitant]
     Route: 065
  9. DIOVAN [Concomitant]
     Route: 065
  10. ELMIRON [Concomitant]
     Route: 065
  11. NORCO [Concomitant]
     Route: 065
  12. LIPITOR [Concomitant]
     Route: 065
  13. METOPROLOL [Concomitant]
     Route: 065
  14. NEXIUM [Concomitant]
     Route: 065
  15. POTASSIUM CHLORIDE [Concomitant]
     Route: 065
  16. SERTRALINE HYDROCHLORIDE [Concomitant]
     Route: 065
  17. SINGULAIR [Concomitant]
     Route: 065
  18. TIZANIDINE HYDROCHLORIDE [Concomitant]
     Route: 065
  19. TRAZODONE HYDROCHLORIDE [Concomitant]
     Route: 065
  20. TYLENOL [Concomitant]
     Route: 065
  21. APAP TAB [Concomitant]
     Route: 065
  22. ALPRAZOLAM [Concomitant]
     Route: 065

REACTIONS (6)
  - CELLULITIS [None]
  - ERYTHEMA [None]
  - JOINT SWELLING [None]
  - NEUTROPENIA [None]
  - OEDEMA PERIPHERAL [None]
  - RASH [None]
